FAERS Safety Report 5926032-X (Version None)
Quarter: 2008Q4

REPORT INFORMATION
  Report Type: 
  Country: None (occurrence: None)
  Receive Date: 20080924
  Receipt Date: 20080731
  Transmission Date: 20090506
  Serious: No
  Sender: FDA-Public Use
  Company Number: US-WYE-H05336608

PATIENT
  Age: 71 Year
  Sex: Male
  Weight: 70.82 kg

DRUGS (5)
  1. TORISEL [Suspect]
     Indication: RENAL CELL CARCINOMA
     Dosage: 25 MG 1X PER 1 WK, INTRAVENOUS
     Route: 042
     Dates: start: 20080523
  2. GABAPENTIN [Concomitant]
  3. ACTOS [Concomitant]
  4. LIPITOR [Concomitant]
  5. ASPIRIN [Concomitant]

REACTIONS (1)
  - ARTHROPOD BITE [None]
